FAERS Safety Report 16139041 (Version 1)
Quarter: 2019Q2

REPORT INFORMATION
  Report Type: Spontaneous
  Country: US (occurrence: US)
  Receive Date: 20190401
  Receipt Date: 20190401
  Transmission Date: 20190711
  Serious: Yes (Hospitalization)
  Sender: FDA-Public Use
  Company Number: US-ADAPT PHARMA INC-2019ADP00034

PATIENT
  Sex: Male

DRUGS (5)
  1. TYLENOL [Suspect]
     Active Substance: ACETAMINOPHEN
     Dosage: UNK, UNK
     Route: 048
  2. NALOXONE HYDROCHLORIDE. [Suspect]
     Active Substance: NALOXONE HYDROCHLORIDE
     Indication: OVERDOSE
     Dosage: UNK, ONCE
     Route: 065
  3. HYDROCODONE [Suspect]
     Active Substance: HYDROCODONE
     Dosage: UNK, UNK
     Route: 048
  4. IBUPROFEN. [Suspect]
     Active Substance: IBUPROFEN
     Dosage: UNK, UNK
     Route: 048
  5. OXYCONTIN [Suspect]
     Active Substance: OXYCODONE HYDROCHLORIDE
     Dosage: UNK, UNK
     Route: 048

REACTIONS (7)
  - Brain injury [Unknown]
  - Coma [Recovered/Resolved]
  - Brain oedema [Unknown]
  - Toxicity to various agents [None]
  - Overdose [None]
  - Motor dysfunction [Not Recovered/Not Resolved]
  - Thinking abnormal [Not Recovered/Not Resolved]
